FAERS Safety Report 17643422 (Version 1)
Quarter: 2020Q2

REPORT INFORMATION
  Report Type: Spontaneous
  Country: US (occurrence: US)
  Receive Date: 20200408
  Receipt Date: 20200408
  Transmission Date: 20200713
  Serious: Yes (Other)
  Sender: FDA-Public Use
  Company Number: US-ALLERGAN-2004294US

PATIENT
  Age: 24 Year
  Sex: Female

DRUGS (2)
  1. LILETTA [Suspect]
     Active Substance: LEVONORGESTREL
     Indication: CONTRACEPTION
  2. LILETTA [Suspect]
     Active Substance: LEVONORGESTREL
     Indication: DYSMENORRHOEA
     Dosage: 52 MG, SINGLE
     Route: 015
     Dates: start: 20191230, end: 20200103

REACTIONS (6)
  - Pelvic pain [Unknown]
  - Pelvic inflammatory disease [Unknown]
  - Uterine perforation [Recovered/Resolved]
  - Cervicitis [Unknown]
  - Off label use [Unknown]
  - Pyrexia [Recovered/Resolved]

NARRATIVE: CASE EVENT DATE: 20191230
